FAERS Safety Report 6567356-5 (Version None)
Quarter: 2010Q1

REPORT INFORMATION
  Report Type: 
  Country: None (occurrence: None)
  Receive Date: 20100202
  Receipt Date: 20100122
  Transmission Date: 20100710
  Serious: Yes (Other)
  Sender: FDA-Public Use
  Company Number: PHHY2010CA04131

PATIENT
  Sex: Male

DRUGS (3)
  1. RASILEZ [Suspect]
     Indication: HYPERTENSION
     Dosage: 300 MG, DAILY
     Route: 065
     Dates: start: 20091204
  2. ATENOLOL [Concomitant]
     Dosage: 50 MG DAILY
     Route: 065
  3. CILAZAPRIL [Concomitant]
     Dosage: 5 MG DAILY
     Route: 065

REACTIONS (3)
  - DYSPHAGIA [None]
  - GLOSSODYNIA [None]
  - TONGUE DISORDER [None]
